FAERS Safety Report 7277102-8 (Version None)
Quarter: 2011Q1

REPORT INFORMATION
  Report Type: 
  Country: None (occurrence: None)
  Receive Date: 20110207
  Receipt Date: 20110202
  Transmission Date: 20110831
  Serious: Yes (Other)
  Sender: FDA-Public Use
  Company Number: US-PFIZER INC-2011011938

PATIENT
  Sex: Female
  Weight: 117.46 kg

DRUGS (5)
  1. PREDNISONE [Suspect]
     Indication: INFECTION
     Dosage: 20 MG, AS NEEDED
     Route: 048
     Dates: start: 20100101
  2. LYRICA [Suspect]
     Indication: PAIN IN EXTREMITY
  3. NORVASC [Concomitant]
     Indication: HYPERTENSION
     Dosage: 5 MG, 1X/DAY
     Route: 048
  4. FORMOTEROL FUMARATE/MOMETASONE FUROATE [Suspect]
     Indication: ASTHMA
     Dosage: 200/5 MCG 2X/DAY
     Dates: start: 20110101
  5. LYRICA [Suspect]
     Indication: ARTHRALGIA
     Dosage: 225 MG, 2X/DAY
     Route: 048

REACTIONS (3)
  - WEIGHT INCREASED [None]
  - ASTHMA [None]
  - PNEUMONIA [None]
